FAERS Safety Report 14256134 (Version 5)
Quarter: 2018Q1

REPORT INFORMATION
  Report Type: Report from Study
  Country: US (occurrence: US)
  Receive Date: 20171206
  Receipt Date: 20180315
  Transmission Date: 20180508
  Serious: Yes (Hospitalization, Other)
  Sender: FDA-Public Use
  Company Number: US-GILEAD-2017-0300650

PATIENT
  Age: 69 Year
  Sex: Male

DRUGS (2)
  1. AMBRISENTAN [Suspect]
     Active Substance: AMBRISENTAN
     Dosage: 5 MG, UNK
     Route: 065
     Dates: start: 20111017
  2. AMBRISENTAN [Suspect]
     Active Substance: AMBRISENTAN
     Indication: PRODUCT USED FOR UNKNOWN INDICATION
     Dosage: 10 MG, UNK
     Route: 065
     Dates: start: 20111103

REACTIONS (11)
  - Urinary tract infection [Not Recovered/Not Resolved]
  - Product use issue [Not Recovered/Not Resolved]
  - Clostridium difficile infection [Not Recovered/Not Resolved]
  - Dialysis [Not Recovered/Not Resolved]
  - Pneumonia [Not Recovered/Not Resolved]
  - Cardiac failure congestive [Not Recovered/Not Resolved]
  - Fall [Recovered/Resolved]
  - Renal failure [Not Recovered/Not Resolved]
  - Urinary tract infection [Recovered/Resolved]
  - Walking aid user [Unknown]
  - Atrial fibrillation [Not Recovered/Not Resolved]

NARRATIVE: CASE EVENT DATE: 201709
